FAERS Safety Report 18802221 (Version 1)
Quarter: 2021Q1

REPORT INFORMATION
  Report Type: Spontaneous
  Country: GB (occurrence: GB)
  Receive Date: 20210128
  Receipt Date: 20210128
  Transmission Date: 20210419
  Serious: Yes (Other)
  Sender: FDA-Public Use
  Company Number: GB-TEVA-2021-GB-1872010

PATIENT
  Age: 41 Year
  Sex: Female

DRUGS (6)
  1. GLUCOSE [Suspect]
     Active Substance: DEXTROSE
     Indication: GLUCOSE TOLERANCE TEST
     Route: 065
  2. PREDNISOLONE. [Suspect]
     Active Substance: PREDNISOLONE
     Dosage: 10 MILLIGRAM DAILY;
     Route: 048
  3. FOLIC ACID. [Suspect]
     Active Substance: FOLIC ACID
     Indication: PRODUCT USED FOR UNKNOWN INDICATION
     Route: 065
  4. ASPIRIN. [Suspect]
     Active Substance: ASPIRIN
     Indication: PROPHYLAXIS
     Route: 065
  5. PREDNISOLONE. [Suspect]
     Active Substance: PREDNISOLONE
     Indication: COOMBS NEGATIVE HAEMOLYTIC ANAEMIA
     Dosage: 20 MILLIGRAM DAILY;
     Route: 048
  6. FERINJECT [Suspect]
     Active Substance: FERRIC CARBOXYMALTOSE
     Indication: COOMBS NEGATIVE HAEMOLYTIC ANAEMIA
     Route: 050

REACTIONS (2)
  - Gestational diabetes [Recovering/Resolving]
  - Maternal exposure during pregnancy [Unknown]
